FAERS Safety Report 15488806 (Version 1)
Quarter: 2018Q4

REPORT INFORMATION
  Report Type: Spontaneous
  Country: US (occurrence: US)
  Receive Date: 20181004
  Receipt Date: 20181004
  Transmission Date: 20190205
  Serious: Yes (Hospitalization)
  Sender: FDA-Public Use
  Company Number: None

PATIENT
  Age: 75 Year
  Sex: Male
  Weight: 96.75 kg

DRUGS (15)
  1. ASPIRIN. [Concomitant]
     Active Substance: ASPIRIN
  2. TYLENOL [Concomitant]
     Active Substance: ACETAMINOPHEN
  3. GABAPENTIN. [Concomitant]
     Active Substance: GABAPENTIN
  4. METOPROLOL. [Concomitant]
     Active Substance: METOPROLOL
  5. MULTI-VITAMIN [Concomitant]
     Active Substance: .ALPHA.-TOCOPHEROL ACETATE, DL-\ASCORBIC ACID\CYANOCOBALAMIN\FLUORIDE ION\FOLIC ACID\NIACIN\PYRIDOXINE\RIBOFLAVIN\THIAMINE\VITAMIN A\VITAMIN D
  6. GLUCOSAMINE-CHONDROITIN [Concomitant]
     Active Substance: CHONDROITIN SULFATE (BOVINE)\GLUCOSAMINE SULFATE
  7. PRAVASTATIN. [Suspect]
     Active Substance: PRAVASTATIN
     Indication: BLOOD CHOLESTEROL
     Dosage: ?          QUANTITY:1 TABLET(S);?
     Route: 048
  8. COLACE [Concomitant]
     Active Substance: DOCUSATE SODIUM
  9. CYMBALTA [Concomitant]
     Active Substance: DULOXETINE HYDROCHLORIDE
  10. TAMSULOSIN [Concomitant]
     Active Substance: TAMSULOSIN
  11. AMIODORONE [Concomitant]
     Active Substance: AMIODARONE
  12. VITAMIN C [Concomitant]
     Active Substance: ASCORBIC ACID
  13. HYDRALAZINE [Concomitant]
     Active Substance: HYDRALAZINE HYDROCHLORIDE
  14. IRBESARTAN. [Concomitant]
     Active Substance: IRBESARTAN
  15. AVOCART [Concomitant]

REACTIONS (13)
  - Pain in extremity [None]
  - Compartment syndrome [None]
  - Peripheral swelling [None]
  - Vascular occlusion [None]
  - Myositis [None]
  - Gait disturbance [None]
  - Angiogram peripheral abnormal [None]
  - Toe amputation [None]
  - Peroneal nerve palsy [None]
  - Skin discolouration [None]
  - Peripheral coldness [None]
  - Haematoma [None]
  - Skin graft [None]

NARRATIVE: CASE EVENT DATE: 20180506
